FAERS Safety Report 15837144 (Version 1)
Quarter: 2019Q1

REPORT INFORMATION
  Report Type: Spontaneous
  Country: US (occurrence: US)
  Receive Date: 20190117
  Receipt Date: 20190117
  Transmission Date: 20190417
  Serious: Yes (Other)
  Sender: FDA-Public Use
  Company Number: US-TEVA-2019-US-997323

PATIENT
  Age: 44 Year
  Sex: Female

DRUGS (3)
  1. LOTEPREDNOL ETABONATE [Concomitant]
     Active Substance: LOTEPREDNOL ETABONATE
     Indication: BLEPHARITIS
     Dosage: TWICE DAILY IN BOTH EYES
     Route: 061
  2. AMANTADINE. [Suspect]
     Active Substance: AMANTADINE HYDROCHLORIDE
     Dosage: 300 MILLIGRAM DAILY; DIVIDED INTO 200 MG IN THE MORNING AND 100 MG IN THE EVENING
     Route: 048
  3. AMANTADINE. [Suspect]
     Active Substance: AMANTADINE HYDROCHLORIDE
     Indication: CEREBRAL PALSY
     Dosage: 400 MILLIGRAM DAILY; FOR OVER 3 YEARS
     Route: 048

REACTIONS (3)
  - Toxicity to various agents [Recovered/Resolved]
  - Corneal endothelial cell loss [Recovered/Resolved]
  - Corneal oedema [Recovered/Resolved]
